FAERS Safety Report 5958198-X (Version None)
Quarter: 2008Q4

REPORT INFORMATION
  Report Type: 
  Country: None (occurrence: None)
  Receive Date: 20081117
  Receipt Date: 20081031
  Transmission Date: 20090506
  Serious: Yes (Hospitalization)
  Sender: FDA-Public Use
  Company Number: 8039277

PATIENT
  Age: 36 Year
  Sex: Male

DRUGS (3)
  1. KEPPRA [Suspect]
     Indication: EPILEPSY
     Dosage: 1000 MG PO
     Route: 048
     Dates: start: 20070303, end: 20070307
  2. LAMICTAL [Suspect]
     Indication: EPILEPSY
     Dosage: 300 MG PO
     Route: 048
     Dates: start: 20070303, end: 20070307
  3. TEGRETOL [Suspect]
     Indication: EPILEPSY
     Dosage: 1200 MG PO
     Route: 048
     Dates: start: 20070303, end: 20070307

REACTIONS (3)
  - BALANCE DISORDER [None]
  - DIZZINESS [None]
  - DYSARTHRIA [None]
